FAERS Safety Report 6253649-8 (Version None)
Quarter: 2009Q3

REPORT INFORMATION
  Report Type: 
  Country: None (occurrence: None)
  Receive Date: 20090701
  Receipt Date: 20090617
  Transmission Date: 20100115
  Serious: Yes (Death)
  Sender: FDA-Public Use
  Company Number: JP-GENENTECH-285705

PATIENT
  Age: 59 Year

DRUGS (2)
  1. HERCEPTIN [Suspect]
     Indication: BREAST CANCER METASTATIC
     Dosage: UNK
     Route: 041
  2. IRINOTECAN HYDROCHLORIDE [Suspect]
     Indication: BREAST CANCER METASTATIC
     Dosage: 100 MG, 1/WEEK
     Route: 041

REACTIONS (4)
  - DECREASED APPETITE [None]
  - NAUSEA [None]
  - NEUTROPENIA [None]
  - SEPSIS [None]
